FAERS Safety Report 8037508-6 (Version None)
Quarter: 2012Q1

REPORT INFORMATION
  Report Type: 
  Country: None (occurrence: None)
  Receive Date: 20120111
  Receipt Date: 20120106
  Transmission Date: 20120608
  Serious: Yes (Life-Threatening, Hospitalization, Other)
  Sender: FDA-Public Use
  Company Number: TW-PFIZER INC-2012003999

PATIENT
  Age: 62 Year
  Sex: Male
  Weight: 48.6 kg

DRUGS (10)
  1. SILYMARIN [Concomitant]
     Dosage: 150 MG, 2X/DAY
     Route: 048
  2. PROCATEROL [Concomitant]
     Dosage: 25 UG, 2X/DAY
     Route: 048
  3. METOCLOPRAMIDE HYDROCHLORIDE [Concomitant]
     Dosage: 10 MG Q8H
     Route: 042
  4. SENNOSIDE A+B [Concomitant]
     Dosage: 24 MG HS
     Route: 048
  5. TAMSULOSIN [Concomitant]
     Dosage: 0.2 MG HS
     Route: 048
  6. UNASYN [Concomitant]
     Dosage: 1.5 G Q6H
     Route: 042
  7. ENTECAVIR [Concomitant]
     Dosage: 0.5 MG, QD AC
     Route: 048
  8. PHENYTOIN SODIUM [Suspect]
     Indication: CEREBROVASCULAR DISORDER
     Dosage: 100 MG, 3X/DAY
     Route: 048
  9. CAPECITABINE [Suspect]
     Indication: METASTASIS
     Dosage: 1000 MG, 2X/DAY
     Route: 048
     Dates: start: 20111110
  10. MAGNESIUM OXIDE [Concomitant]
     Dosage: 250 MG, 3X/DAY
     Route: 048

REACTIONS (6)
  - DYSPNOEA [None]
  - ANTICONVULSANT DRUG LEVEL INCREASED [None]
  - HYPOTENSION [None]
  - BRADYCARDIA [None]
  - DRUG INTERACTION [None]
  - COMA [None]
